FAERS Safety Report 9580860 (Version 1)
Quarter: 2013Q4

REPORT INFORMATION
  Report Type: Spontaneous
  Country: US (occurrence: None)
  Receive Date: 20131001
  Receipt Date: 20131001
  Transmission Date: 20140711
  Serious: Yes (Disabling)
  Sender: FDA-Public Use
  Company Number: None

PATIENT
  Age: 29 Year
  Sex: Female
  Weight: 65.77 kg

DRUGS (1)
  1. CIPROFLOXACIN [Suspect]
     Indication: URINARY TRACT INFECTION
     Dosage: 2 PILLS
     Route: 048
     Dates: start: 20130925, end: 20130927

REACTIONS (16)
  - Muscular weakness [None]
  - Pain [None]
  - Photosensitivity reaction [None]
  - Headache [None]
  - Erythema [None]
  - Insomnia [None]
  - Night sweats [None]
  - Nightmare [None]
  - Muscle twitching [None]
  - Depersonalisation [None]
  - Memory impairment [None]
  - Musculoskeletal stiffness [None]
  - Joint swelling [None]
  - Dysphagia [None]
  - Palpitations [None]
  - Musculoskeletal pain [None]
